FAERS Safety Report 10565345 (Version 2)
Quarter: 2014Q4

REPORT INFORMATION
  Report Type: Spontaneous
  Country: JP (occurrence: JP)
  Receive Date: 20141105
  Receipt Date: 20141111
  Transmission Date: 20150529
  Serious: Yes (Hospitalization)
  Sender: FDA-Public Use
  Company Number: PHJP2014JP001283

PATIENT
  Age: 23 Year
  Sex: Male

DRUGS (2)
  1. CARBAMAZEPINE. [Suspect]
     Active Substance: CARBAMAZEPINE
     Indication: EPILEPSY
     Dosage: 46800 MG, UNK
     Route: 065
  2. GRAPEFRUIT JUICE [Concomitant]
     Active Substance: GRAPEFRUIT JUICE
     Indication: PRODUCT USED FOR UNKNOWN INDICATION
     Route: 065

REACTIONS (4)
  - Overdose [Unknown]
  - Toxicity to various agents [Recovering/Resolving]
  - Dyskinesia [Unknown]
  - Restlessness [Unknown]
